FAERS Safety Report 7549174-4 (Version None)
Quarter: 2011Q2

REPORT INFORMATION
  Report Type: 
  Country: None (occurrence: None)
  Receive Date: 20110615
  Receipt Date: 20110602
  Transmission Date: 20111010
  Serious: Yes (Hospitalization)
  Sender: FDA-Public Use
  Company Number: PHFR2010GB04903

PATIENT
  Sex: Female

DRUGS (9)
  1. DEPAKOTE [Concomitant]
     Dosage: 250 MG MANE, 100 MG NOCTE
  2. CLOZAPINE [Suspect]
     Dosage: 450 MG, QD
     Route: 048
     Dates: start: 20101022
  3. LAXATIVES [Concomitant]
  4. PIRENZEPINE [Concomitant]
     Dosage: 50 MG, BID
  5. ZOPICLONE [Concomitant]
     Dosage: 2.75 MG, NOCTE
  6. IPRATROPIUM BROMIDE [Concomitant]
  7. CLOZAPINE [Suspect]
     Indication: SCHIZOPHRENIA
     Dosage: 475 MG, QD
     Route: 048
     Dates: start: 19980828, end: 20101020
  8. CLOZAPINE [Suspect]
     Dosage: 425 MG, QD
  9. ALBUTEROL [Concomitant]

REACTIONS (6)
  - WHITE BLOOD CELL COUNT INCREASED [None]
  - DELIRIUM [None]
  - PNEUMONIA [None]
  - MEDICATION ERROR [None]
  - CONFUSIONAL STATE [None]
  - INAPPROPRIATE AFFECT [None]
